FAERS Safety Report 10969871 (Version 2)
Quarter: 2015Q2

REPORT INFORMATION
  Report Type: Spontaneous
  Country: US (occurrence: US)
  Receive Date: 20150331
  Receipt Date: 20150409
  Transmission Date: 20150821
  Serious: No
  Sender: FDA-Public Use
  Company Number: US-PFIZER INC-2015107799

PATIENT
  Age: 52 Year
  Sex: Female

DRUGS (1)
  1. IBRANCE [Suspect]
     Active Substance: PALBOCICLIB
     Indication: NEOPLASM MALIGNANT
     Dosage: 125 MG, CYCLIC, (1 CAPSULE) EVERYDAY FOR 21 DAYS EVERY 28 DAYS
     Route: 048
     Dates: start: 20150316

REACTIONS (4)
  - Fatigue [Unknown]
  - Disease progression [Unknown]
  - Lacrimation increased [Unknown]
  - Neoplasm malignant [Unknown]
